FAERS Safety Report 5336370-X (Version None)
Quarter: 2007Q2

REPORT INFORMATION
  Report Type: 
  Country: None (occurrence: None)
  Receive Date: 20070523
  Receipt Date: 20070507
  Transmission Date: 20071010
  Serious: Yes (Hospitalization, Other)
  Sender: FDA-Public Use
  Company Number: 2007VX001149

PATIENT
  Age: 45 Year
  Sex: Female

DRUGS (28)
  1. PERMAX [Suspect]
     Dosage: SEE IMAGE
     Dates: start: 19980930, end: 19990620
  2. PERMAX [Suspect]
     Dosage: SEE IMAGE
     Dates: start: 19990621, end: 20020601
  3. PERMAX [Suspect]
     Dosage: SEE IMAGE
     Dates: start: 20040406, end: 20040101
  4. PERMAX [Suspect]
     Dosage: SEE IMAGE
     Dates: start: 20020602, end: 20040405
  5. NARBALEK [Concomitant]
  6. DEPO-MEDRO + LIDOCAINE [Concomitant]
  7. ULTRAM [Concomitant]
  8. PRAMIPEXOLE DIHYDROCHLORIDE [Concomitant]
  9. PREDNISONE TAB [Concomitant]
  10. XANAX [Concomitant]
  11. CLARITIN-D [Concomitant]
  12. TEGRETOL [Concomitant]
  13. FIORICET [Concomitant]
  14. ELAVIL [Concomitant]
  15. VIOXX [Concomitant]
  16. PROZAC [Concomitant]
  17. ADVIL [Concomitant]
  18. FLEXERIL [Concomitant]
  19. NORFLEX [Concomitant]
  20. SINEMET [Concomitant]
  21. FLONASE [Concomitant]
  22. CEFTIN [Concomitant]
  23. MIDRIN [Concomitant]
  24. CAFFEINE [Concomitant]
  25. MARIJUANA [Concomitant]
  26. VISTARIL [Concomitant]
  27. KETOPROFEN [Concomitant]
  28. KEFLEX [Concomitant]

REACTIONS (20)
  - ACANTHOMA [None]
  - ANTINUCLEAR ANTIBODY POSITIVE [None]
  - ATRIOVENTRICULAR BLOCK COMPLETE [None]
  - CARDIAC MURMUR [None]
  - CARDIOMEGALY [None]
  - CHONDROPLASTY [None]
  - CORONARY ARTERY DISEASE [None]
  - HYPERKERATOSIS [None]
  - INTERSTITIAL LUNG DISEASE [None]
  - JOINT INJURY [None]
  - LOBAR PNEUMONIA [None]
  - MITRAL VALVE INCOMPETENCE [None]
  - MITRAL VALVE STENOSIS [None]
  - PERICARDIAL EFFUSION [None]
  - PLEURISY [None]
  - PULMONARY HYPERTENSION [None]
  - RESPIRATORY DISORDER [None]
  - SLEEP DISORDER [None]
  - TRICUSPID VALVE INCOMPETENCE [None]
  - TRICUSPID VALVE STENOSIS [None]
